FAERS Safety Report 5049089-X (Version None)
Quarter: 2006Q3

REPORT INFORMATION
  Report Type: 
  Country: None (occurrence: None)
  Receive Date: 20060706
  Receipt Date: 20060623
  Transmission Date: 20061208
  Serious: Yes (Hospitalization)
  Sender: FDA-Public Use
  Company Number: 2006074513

PATIENT
  Age: 56 Year
  Sex: Male
  Weight: 93 kg

DRUGS (8)
  1. SUTENT [Suspect]
     Indication: METASTATIC RENAL CELL CARCINOMA
     Dosage: 50 MG (50 MG, DAILY - INTERVAL: EVERY DAY), ORAL
     Route: 048
     Dates: start: 20060516
  2. ALL OTHER THERAPEUTIC PRODUCTS [Concomitant]
  3. ALLOPURINOL [Concomitant]
  4. ACETYLSALICYLIC ACID SRT [Concomitant]
  5. METOCLOPRAMIDE HYDROCHLORIDE [Concomitant]
  6. ENALAPRIL MALEATE [Concomitant]
  7. ISOSORBIDE MONONITRATE [Concomitant]
  8. SIMVASTATIN [Concomitant]

REACTIONS (6)
  - BLOOD BILIRUBIN INCREASED [None]
  - DEHYDRATION [None]
  - DIARRHOEA [None]
  - FEBRILE NEUTROPENIA [None]
  - PANCYTOPENIA [None]
  - RENAL FAILURE ACUTE [None]
